FAERS Safety Report 13786804 (Version 1)
Quarter: 2017Q3

REPORT INFORMATION
  Report Type: Spontaneous
  Country: US (occurrence: US)
  Receive Date: 20170725
  Receipt Date: 20170725
  Transmission Date: 20171127
  Serious: No
  Sender: FDA-Public Use
  Company Number: US-JNJFOC-20170611570

PATIENT
  Age: 25 Year
  Sex: Male
  Weight: 62.6 kg

DRUGS (1)
  1. TYLENOL EXTRA STRENGTH [Suspect]
     Active Substance: ACETAMINOPHEN
     Indication: HEADACHE
     Dosage: 2 TABLETS, 3 TIMES PER DAY
     Route: 048

REACTIONS (1)
  - Drug effect incomplete [Unknown]
